FAERS Safety Report 7619700-5 (Version None)
Quarter: 2011Q3

REPORT INFORMATION
  Report Type: 
  Country: None (occurrence: None)
  Receive Date: 20110719
  Receipt Date: 20110712
  Transmission Date: 20111222
  Serious: No
  Sender: FDA-Public Use
  Company Number: CA-ABBOTT-11P-028-0837254-00

PATIENT
  Sex: Female
  Weight: 102.15 kg

DRUGS (6)
  1. SORIATANE [Suspect]
     Indication: PSORIASIS
     Route: 048
     Dates: start: 20110510, end: 20110601
  2. HUMIRA [Suspect]
     Route: 058
  3. NORVASC [Concomitant]
     Indication: HYPERTENSION
     Route: 048
  4. CELEXA [Concomitant]
     Indication: ANTIDEPRESSANT THERAPY
     Route: 048
  5. HUMIRA [Suspect]
     Indication: PSORIATIC ARTHROPATHY
     Dosage: 1ST DOSE ONLY, 1 IN 1 WEEK
     Route: 058
  6. HUMIRA [Suspect]
     Indication: PSORIATIC ARTHROPATHY
     Route: 058
     Dates: start: 20110501, end: 20110624

REACTIONS (8)
  - POSTMENOPAUSAL HAEMORRHAGE [None]
  - HEADACHE [None]
  - PSORIASIS [None]
  - NAUSEA [None]
  - HEART RATE IRREGULAR [None]
  - ARTHRITIS [None]
  - FATIGUE [None]
  - DRUG INEFFECTIVE [None]
